FAERS Safety Report 9267069 (Version 1)
Quarter: 2013Q2

REPORT INFORMATION
  Report Type: Spontaneous
  Country: FR (occurrence: FR)
  Receive Date: 20130502
  Receipt Date: 20130502
  Transmission Date: 20140414
  Serious: Yes (Other)
  Sender: FDA-Public Use
  Company Number: FR-JNJFOC-20130416268

PATIENT
  Sex: Female

DRUGS (2)
  1. NICORETTE 2 MG GUM [Suspect]
     Indication: SMOKING CESSATION THERAPY
     Route: 002
  2. NICORETTE 4 MG GUM [Suspect]
     Indication: SMOKING CESSATION THERAPY
     Route: 002
     Dates: start: 2012

REACTIONS (2)
  - Nicotine dependence [Not Recovered/Not Resolved]
  - Intentional drug misuse [Unknown]
